FAERS Safety Report 21972632 (Version 1)
Quarter: 2023Q1

REPORT INFORMATION
  Report Type: Spontaneous
  Country: AU (occurrence: AU)
  Receive Date: 20230209
  Receipt Date: 20230209
  Transmission Date: 20230417
  Serious: Yes (Hospitalization, Other)
  Sender: FDA-Public Use
  Company Number: None

PATIENT
  Age: 71 Year
  Sex: Male

DRUGS (11)
  1. METHOTREXATE [Suspect]
     Active Substance: METHOTREXATE
     Indication: Polychondritis
     Dosage: 25 MG
     Route: 065
     Dates: start: 2015
  2. METHOTREXATE [Suspect]
     Active Substance: METHOTREXATE
     Dosage: 10 MG
     Route: 065
     Dates: start: 201903
  3. AZATHIOPRINE [Suspect]
     Active Substance: AZATHIOPRINE
     Indication: Polychondritis
     Dosage: UNK
     Route: 065
     Dates: start: 2015
  4. ADALIMUMAB [Suspect]
     Active Substance: ADALIMUMAB
     Indication: Polychondritis
     Dosage: UNK
     Route: 065
     Dates: start: 2015
  5. CYCLOSPORINE [Suspect]
     Active Substance: CYCLOSPORINE
     Indication: Polychondritis
     Dosage: UNK
     Route: 065
     Dates: start: 2015
  6. ETANERCEPT [Suspect]
     Active Substance: ETANERCEPT
     Indication: Polychondritis
     Dosage: UNK
     Route: 065
     Dates: start: 2015
  7. LEFLUNOMIDE [Suspect]
     Active Substance: LEFLUNOMIDE
     Indication: Polychondritis
     Dosage: UNK
     Route: 065
  8. PREDNISOLONE [Suspect]
     Active Substance: PREDNISOLONE
     Indication: Polychondritis
     Dosage: 15 MG, QD
     Route: 065
     Dates: start: 2014
  9. PREDNISOLONE [Suspect]
     Active Substance: PREDNISOLONE
     Dosage: 5 MG, QD
     Route: 065
     Dates: start: 2019
  10. PREDNISOLONE [Suspect]
     Active Substance: PREDNISOLONE
     Dosage: 3 MG, QD
     Route: 065
     Dates: start: 2021
  11. GOLIMUMAB [Suspect]
     Active Substance: GOLIMUMAB
     Indication: Polychondritis
     Dosage: UNK
     Route: 065
     Dates: start: 2015

REACTIONS (6)
  - Nocardiosis [Unknown]
  - Pancytopenia [Unknown]
  - Pyrexia [Unknown]
  - Lung infiltration [Unknown]
  - Skin lesion [Unknown]
  - Off label use [Unknown]

NARRATIVE: CASE EVENT DATE: 20180101
